FAERS Safety Report 8948194 (Version 1)
Quarter: 2012Q4

REPORT INFORMATION
  Report Type: Spontaneous
  Country: GB (occurrence: None)
  Receive Date: 20121127
  Receipt Date: 20121127
  Transmission Date: 20130627
  Serious: Yes (Disabling)
  Sender: FDA-Public Use
  Company Number: 2012-20019

PATIENT
  Age: 66 Year
  Sex: Female
  Weight: 73 kg

DRUGS (5)
  1. ZOLPIDEM TARTRATE [Suspect]
     Indication: DRUG USE FOR UNKNOWN INDICATION
     Dates: start: 20121008, end: 20121022
  2. FELODIPINE (FELODIPINE) [Concomitant]
  3. LOSARTAN (LOSARTAN) [Concomitant]
  4. FLUTICASONE FUROATE (FLUTICASONE FUROATE) [Concomitant]
  5. NITRAZEPAM (NITRAZEPAM) [Concomitant]

REACTIONS (4)
  - Pruritus [None]
  - Diarrhoea [None]
  - Muscular weakness [None]
  - Pruritus [None]
